FAERS Safety Report 11034367 (Version 4)
Quarter: 2015Q3

REPORT INFORMATION
  Report Type: Spontaneous
  Country: US (occurrence: US)
  Receive Date: 20150415
  Receipt Date: 20150910
  Transmission Date: 20151125
  Serious: No
  Sender: FDA-Public Use
  Company Number: US-GILEAD-2015-0147219

PATIENT
  Age: 66 Year
  Sex: Female

DRUGS (13)
  1. NORVASC [Concomitant]
     Active Substance: AMLODIPINE BESYLATE
  2. OMEPRAZOLE. [Concomitant]
     Active Substance: OMEPRAZOLE
  3. ESTRADIOL. [Concomitant]
     Active Substance: ESTRADIOL
  4. LEVOXYL [Concomitant]
     Active Substance: LEVOTHYROXINE SODIUM
  5. COMPRO [Concomitant]
     Active Substance: PROCHLORPERAZINE
  6. GUAIFENESIN. [Concomitant]
     Active Substance: GUAIFENESIN
  7. CLEOCIN [Concomitant]
     Active Substance: CLINDAMYCIN PHOSPHATE
  8. KEFLEX [Concomitant]
     Active Substance: CEPHALEXIN
  9. XANAX [Concomitant]
     Active Substance: ALPRAZOLAM
  10. BUPRENORPHINE. [Concomitant]
     Active Substance: BUPRENORPHINE
  11. NALOXONE [Concomitant]
     Active Substance: NALOXONE
  12. HARVONI [Suspect]
     Active Substance: LEDIPASVIR\SOFOSBUVIR
     Indication: HEPATITIS C
     Dosage: 1 DF, QD
     Route: 065
  13. TAMSULOSIN [Concomitant]
     Active Substance: TAMSULOSIN

REACTIONS (1)
  - Respiratory tract congestion [Recovered/Resolved]

NARRATIVE: CASE EVENT DATE: 20150403
